FAERS Safety Report 8509777-7 (Version None)
Quarter: 2012Q3

REPORT INFORMATION
  Report Type: 
  Country: None (occurrence: None)
  Receive Date: 20120713
  Receipt Date: 20120625
  Transmission Date: 20120928
  Serious: No
  Sender: FDA-Public Use
  Company Number: US-ASTRAZENECA-2012SE26704

PATIENT
  Age: 57 Year
  Sex: Female

DRUGS (3)
  1. TOPROL-XL [Suspect]
     Route: 048
  2. CLARITIN-D [Concomitant]
  3. TOPROL-XL [Suspect]
     Dosage: TWICE A DAY
     Route: 048

REACTIONS (4)
  - COUGH [None]
  - HYPERTENSION [None]
  - SINUSITIS [None]
  - HEADACHE [None]
